FAERS Safety Report 20593857 (Version 1)
Quarter: 2022Q1

REPORT INFORMATION
  Report Type: Report from Study
  Country: US (occurrence: US)
  Receive Date: 20220315
  Receipt Date: 20220315
  Transmission Date: 20220423
  Serious: Yes (Hospitalization, Other)
  Sender: FDA-Public Use
  Company Number: US-GLAXOSMITHKLINE-US2022AMR011086

PATIENT
  Age: 52 Year
  Sex: Female

DRUGS (5)
  1. BELANTAMAB MAFODOTIN [Suspect]
     Active Substance: BELANTAMAB MAFODOTIN
     Indication: Plasma cell myeloma
     Dosage: 152 MG, 2.5MG/KG
     Dates: start: 20211227
  2. BELANTAMAB MAFODOTIN [Suspect]
     Active Substance: BELANTAMAB MAFODOTIN
     Dosage: UNK
     Dates: start: 20211221
  3. VCD (BORTEZOMIB + CYCLOPHOSPHAMID + DEXAMETHASONE) [Concomitant]
     Indication: Product used for unknown indication
     Dosage: UNK
  4. RVD (BORTEZOMIB + DEXAMETHASONE + LENALIDOMIDE) [Concomitant]
     Indication: Product used for unknown indication
     Dosage: UNK
  5. DARATUMUMAB [Concomitant]
     Active Substance: DARATUMUMAB
     Indication: Product used for unknown indication
     Dosage: UNK

REACTIONS (3)
  - COVID-19 [Unknown]
  - Femur fracture [Unknown]
  - Hospitalisation [Not Recovered/Not Resolved]

NARRATIVE: CASE EVENT DATE: 20220102
